FAERS Safety Report 11692422 (Version 1)
Quarter: 2015Q4

REPORT INFORMATION
  Report Type: Spontaneous
  Country: US (occurrence: US)
  Receive Date: 20151103
  Receipt Date: 20151103
  Transmission Date: 20160304
  Serious: Yes (Death, Hospitalization)
  Sender: FDA-Public Use
  Company Number: US-CIPLA LTD.-2015US08221

PATIENT

DRUGS (2)
  1. AMLODIPINE [Suspect]
     Active Substance: AMLODIPINE BESYLATE
     Dosage: 10 MG, 70 TABLETS
     Route: 065
  2. LISINOPRIL. [Suspect]
     Active Substance: LISINOPRIL
     Dosage: 30 TABLETS
     Route: 065

REACTIONS (5)
  - Hypotension [Fatal]
  - Suicide attempt [Fatal]
  - Overdose [Fatal]
  - Haemodynamic instability [Fatal]
  - Toxicity to various agents [Fatal]
